FAERS Safety Report 21048790 (Version 1)
Quarter: 2022Q3

REPORT INFORMATION
  Report Type: 
  Country: None (occurrence: None)
  Receive Date: 20220706
  Receipt Date: 20220706
  Transmission Date: 20221026
  Serious: No
  Sender: FDA-Public Use
  Company Number: None

PATIENT
  Sex: Female

DRUGS (1)
  1. AZASITE [Suspect]
     Active Substance: AZITHROMYCIN MONOHYDRATE

REACTIONS (3)
  - Eye irritation [Unknown]
  - Eye discharge [Unknown]
  - Lacrimation increased [Unknown]
